FAERS Safety Report 18129082 (Version 1)
Quarter: 2020Q3

REPORT INFORMATION
  Report Type: Spontaneous
  Country: US (occurrence: US)
  Receive Date: 20200808
  Receipt Date: 20200808
  Transmission Date: 20201103
  Serious: Yes (Disabling)
  Sender: FDA-Public Use
  Company Number: None

PATIENT
  Age: 42 Year
  Sex: Female
  Weight: 92.25 kg

DRUGS (12)
  1. AMITRIPTYLINE [Concomitant]
     Active Substance: AMITRIPTYLINE
  2. SOOLANTRA [Concomitant]
     Active Substance: IVERMECTIN
  3. NORETHIND?ETH EST [Concomitant]
     Active Substance: ETHINYL ESTRADIOL\NORETHINDRONE ACETATE
  4. VITAMIN B12 [Concomitant]
     Active Substance: CYANOCOBALAMIN
  5. UBRELVY [Concomitant]
     Active Substance: UBROGEPANT
  6. COLON CLIPS (2) [Concomitant]
  7. VITAMIN D [Concomitant]
     Active Substance: VITAMIN D NOS
  8. MELATONIN 5MG [Concomitant]
     Active Substance: MELATONIN
  9. ELMIRON [Suspect]
     Active Substance: PENTOSAN POLYSULFATE SODIUM
     Indication: CYSTITIS INTERSTITIAL
     Dosage: ?          QUANTITY:1 CAPSULE(S);?
     Route: 048
     Dates: start: 20000301, end: 20060601
  10. CLARITIN [Concomitant]
     Active Substance: LORATADINE
  11. TECFIDERA [Concomitant]
     Active Substance: DIMETHYL FUMARATE
  12. OMEPRAZOLE. [Concomitant]
     Active Substance: OMEPRAZOLE

REACTIONS (3)
  - Blister [None]
  - Maculopathy [None]
  - Chorioretinopathy [None]

NARRATIVE: CASE EVENT DATE: 20160805
